FAERS Safety Report 5758176-X (Version None)
Quarter: 2008Q2

REPORT INFORMATION
  Report Type: 
  Country: None (occurrence: None)
  Receive Date: 20080602
  Receipt Date: 20080602
  Transmission Date: 20081010
  Serious: Yes (Other)
  Sender: FDA-Public Use
  Company Number: None

PATIENT
  Age: 10 Year
  Sex: Male
  Weight: 23.1334 kg

DRUGS (2)
  1. ULTRA SHEER BODY MIST SUNBLOCK SPF 45 NEUTROGENA [Suspect]
     Indication: PROPHYLAXIS
     Dosage: ADEQUATE COVERAGE 2 TIMES TOP
     Route: 061
     Dates: start: 20080529, end: 20080529
  2. ULTRA SHEER BODY MIST SUNBLOCK SPF 45 NEUTROGENA [Suspect]
     Indication: SUNBURN
     Dosage: ADEQUATE COVERAGE 2 TIMES TOP
     Route: 061
     Dates: start: 20080529, end: 20080529

REACTIONS (2)
  - APPLICATION SITE BURN [None]
  - BURNS SECOND DEGREE [None]
